FAERS Safety Report 6336795-X (Version None)
Quarter: 2009Q3

REPORT INFORMATION
  Report Type: 
  Country: None (occurrence: None)
  Receive Date: 20090901
  Receipt Date: 20090821
  Transmission Date: 20100115
  Serious: Yes (Other)
  Sender: FDA-Public Use
  Company Number: US-ROCHE-651997

PATIENT
  Age: 71 Year
  Sex: Male

DRUGS (9)
  1. CELLCEPT [Suspect]
     Route: 065
     Dates: end: 20010101
  2. CELLCEPT [Suspect]
     Dosage: DOSE: 500 MG IN MORNING, 250 MG IN EVENING, DOSE LOWERED
     Route: 065
     Dates: start: 20010101
  3. INSULIN [Concomitant]
  4. HYTRIN [Concomitant]
  5. ZOCOR [Concomitant]
  6. GABAPENTIN [Concomitant]
  7. CYCLOSPORINE [Concomitant]
  8. ASPIRIN [Concomitant]
  9. TYLENOL (CAPLET) [Concomitant]

REACTIONS (7)
  - BLOOD CHOLESTEROL INCREASED [None]
  - DIABETES MELLITUS [None]
  - HYPERTENSION [None]
  - MYELITIS TRANSVERSE [None]
  - NEUROPATHY PERIPHERAL [None]
  - RENAL FAILURE CHRONIC [None]
  - WHITE BLOOD CELL COUNT DECREASED [None]
